FAERS Safety Report 5528007-1 (Version None)
Quarter: 2007Q4

REPORT INFORMATION
  Report Type: 
  Country: None (occurrence: None)
  Receive Date: 20071123
  Receipt Date: 20071116
  Transmission Date: 20080405
  Serious: Yes (Other)
  Sender: FDA-Public Use
  Company Number: 2007335467

PATIENT
  Age: 52 Year
  Sex: Female
  Weight: 58.9676 kg

DRUGS (2)
  1. SUDAFED PE NON DRYING SINUS (PHENYLEPHRINE, GUAIFENESIN) [Suspect]
     Indication: SINUS CONGESTION
     Dosage: 1 TABLET ONCE, ORAL
     Route: 048
     Dates: start: 20071115, end: 20071115
  2. ALBUTEROL [Concomitant]

REACTIONS (2)
  - DYSPNOEA [None]
  - PRURITUS [None]
